FAERS Safety Report 8826818 (Version 2)
Quarter: 2012Q4

REPORT INFORMATION
  Report Type: 
  Country: US (occurrence: US)
  Receive Date: 20121008
  Receipt Date: 20121105
  Transmission Date: 20130627
  Serious: No
  Sender: FDA-Public Use
  Company Number: US-PFIZER INC-2012245470

PATIENT
  Age: 55 Year
  Sex: Male
  Weight: 181 kg

DRUGS (9)
  1. NEURONTIN [Suspect]
     Indication: PAIN NERVE
     Dosage: 300mg 1 Q 8 AM, at 1 Q PM, two bedtime
     Route: 048
     Dates: start: 20120830
  2. NEURONTIN [Suspect]
     Indication: RADICULAR PAIN
     Dosage: UNK
     Route: 048
     Dates: start: 20120927
  3. ASPIRIN [Concomitant]
     Dosage: 325 mg, 1x/day
  4. KLONOPIN [Concomitant]
     Dosage: 1 mg, 1x/day
  5. DICLOFENAC [Concomitant]
     Dosage: 50 mg, 3x/day
  6. LASIX [Concomitant]
     Dosage: 40 mg, 1x/day
  7. LISINOPRIL [Concomitant]
     Dosage: 20 mg, 1x/day
  8. METOPROLOL [Concomitant]
     Dosage: 40 mg, 2x/day
  9. OMEPRAZOLE [Concomitant]
     Dosage: 2 tablets of 20mg, once in morning

REACTIONS (3)
  - Arthritis [Recovered/Resolved]
  - Musculoskeletal stiffness [Recovered/Resolved]
  - Neck pain [Recovered/Resolved]
